FAERS Safety Report 10537093 (Version 1)
Quarter: 2014Q4

REPORT INFORMATION
  Report Type: Spontaneous
  Country: US (occurrence: US)
  Receive Date: 20141022
  Receipt Date: 20141022
  Transmission Date: 20150529
  Serious: Yes (Other)
  Sender: FDA-Public Use
  Company Number: US-ASTRAZENECA-2014SE79041

PATIENT
  Age: 921 Month
  Sex: Female

DRUGS (6)
  1. NATURE MADE MULTIVITAMIN FOR HER WITH IRON, CALCIUM AND D3 [Concomitant]
     Indication: BLOOD MAGNESIUM DECREASED
     Route: 048
  2. OMEGA 3 FISH OIL [Concomitant]
     Active Substance: FISH OIL\OMEGA-3 FATTY ACIDS
     Indication: BLOOD CHOLESTEROL ABNORMAL
     Route: 048
  3. NATURE MADE MULTIVITAMIN [Concomitant]
     Indication: VITAMIN SUPPLEMENTATION
     Route: 048
  4. NATURE MADE MULTIVITAMIN FOR HER WITH IRON, CALCIUM AND D3 [Concomitant]
     Indication: BLOOD POTASSIUM DECREASED
     Route: 048
  5. SEROQUEL XR [Suspect]
     Active Substance: QUETIAPINE FUMARATE
     Indication: DEPRESSION
     Route: 048
  6. WALDRYL GENERIC BENADRYL [Concomitant]
     Indication: MULTIPLE ALLERGIES
     Dosage: 1
     Route: 048

REACTIONS (16)
  - Balance disorder [Unknown]
  - Memory impairment [Not Recovered/Not Resolved]
  - Body height decreased [Not Recovered/Not Resolved]
  - Sleep disorder [Not Recovered/Not Resolved]
  - Urinary tract infection [Not Recovered/Not Resolved]
  - Eye infection [Not Recovered/Not Resolved]
  - Ear infection [Not Recovered/Not Resolved]
  - Cataract [Not Recovered/Not Resolved]
  - Weight decreased [Recovering/Resolving]
  - Constipation [Not Recovered/Not Resolved]
  - Dysphonia [Not Recovered/Not Resolved]
  - Swollen tongue [Recovering/Resolving]
  - Vomiting [Not Recovered/Not Resolved]
  - Diarrhoea [Not Recovered/Not Resolved]
  - Anxiety [Unknown]
  - Intentional product misuse [Not Recovered/Not Resolved]

NARRATIVE: CASE EVENT DATE: 201408
